FAERS Safety Report 8139563-1 (Version None)
Quarter: 2012Q1

REPORT INFORMATION
  Report Type: 
  Country: None (occurrence: None)
  Receive Date: 20120215
  Receipt Date: 20120207
  Transmission Date: 20120608
  Serious: Yes (Other)
  Sender: FDA-Public Use
  Company Number: PHHY2012BR011185

PATIENT
  Sex: Female
  Weight: 62 kg

DRUGS (5)
  1. AZATIOPRIN [Concomitant]
     Dosage: 1 DF, UNK
     Route: 048
  2. BISOPROLOL FUMARATE [Concomitant]
     Dosage: 1 DF, UNK
     Route: 048
  3. LASIX [Concomitant]
     Dosage: 1.5 DF, UNK
     Route: 048
  4. BUFFERIN [Suspect]
     Dosage: 81 MG, (30 CT)
  5. EXFORGE [Concomitant]
     Indication: HYPERTENSION
     Dosage: 1 DF, UNK
     Route: 048

REACTIONS (3)
  - CARDIAC FAILURE [None]
  - DYSPNOEA [None]
  - FATIGUE [None]
